FAERS Safety Report 13689939 (Version 2)
Quarter: 2017Q3

REPORT INFORMATION
  Report Type: Spontaneous
  Country: JP (occurrence: JP)
  Receive Date: 20170626
  Receipt Date: 20170703
  Transmission Date: 20171127
  Serious: Yes (Hospitalization)
  Sender: FDA-Public Use
  Company Number: JP-BIOGEN-2017BI00419050

PATIENT
  Age: 32 Year
  Sex: Female

DRUGS (2)
  1. TYSABRI [Suspect]
     Active Substance: NATALIZUMAB
     Indication: MULTIPLE SCLEROSIS
     Route: 041
     Dates: start: 20170523
  2. TYSABRI [Suspect]
     Active Substance: NATALIZUMAB
     Route: 041

REACTIONS (2)
  - Multiple sclerosis relapse [Recovered/Resolved]
  - Bradycardia [Recovered/Resolved]
